FAERS Safety Report 12545083 (Version 2)
Quarter: 2016Q4

REPORT INFORMATION
  Report Type: Report from Study
  Country: US (occurrence: US)
  Receive Date: 20160711
  Receipt Date: 20161010
  Transmission Date: 20170207
  Serious: No
  Sender: FDA-Public Use
  Company Number: US-JNJFOC-20160704001

PATIENT
  Age: 64 Year
  Sex: Male
  Weight: 103 kg

DRUGS (5)
  1. IMBRUVICA [Suspect]
     Active Substance: IBRUTINIB
     Indication: B-CELL LYMPHOMA REFRACTORY
     Route: 048
     Dates: start: 20150227
  2. IMBRUVICA [Suspect]
     Active Substance: IBRUTINIB
     Indication: B-CELL LYMPHOMA REFRACTORY
     Route: 048
     Dates: start: 201404, end: 20141010
  3. ACYCLOVIR. [Concomitant]
     Active Substance: ACYCLOVIR
  4. PROTONIX [Concomitant]
     Active Substance: PANTOPRAZOLE SODIUM
  5. RITUXAN [Concomitant]
     Active Substance: RITUXIMAB
     Indication: DIFFUSE LARGE B-CELL LYMPHOMA
     Dates: start: 20141027, end: 2014

REACTIONS (7)
  - Pruritus [Not Recovered/Not Resolved]
  - Headache [Recovered/Resolved]
  - Dizziness [Unknown]
  - Off label use [Not Recovered/Not Resolved]
  - Decreased appetite [Not Recovered/Not Resolved]
  - Dehydration [Unknown]
  - Product use issue [Not Recovered/Not Resolved]

NARRATIVE: CASE EVENT DATE: 2014
